FAERS Safety Report 12181511 (Version 1)
Quarter: 2016Q1

REPORT INFORMATION
  Report Type: Other
  Country: GB (occurrence: GB)
  Receive Date: 20160315
  Receipt Date: 20160315
  Transmission Date: 20160526
  Serious: Yes (Hospitalization)
  Sender: FDA-Public Use
  Company Number: GB-MYLANLABS-2016M1010253

PATIENT

DRUGS (1)
  1. DESLORATADINE. [Suspect]
     Active Substance: DESLORATADINE
     Indication: DRUG HYPERSENSITIVITY
     Dosage: 2 DF, TOTAL (2 TABLETS AT ONCE)
     Route: 048

REACTIONS (3)
  - Ketoacidosis [Unknown]
  - Blister [Unknown]
  - Dehydration [Unknown]
